FAERS Safety Report 14798241 (Version 1)
Quarter: 2018Q2

REPORT INFORMATION
  Report Type: Spontaneous
  Country: US (occurrence: US)
  Receive Date: 20180415
  Receipt Date: 20180415
  Transmission Date: 20180711
  Serious: No
  Sender: FDA-Public Use
  Company Number: None

PATIENT
  Age: 62 Year
  Sex: Male
  Weight: 86.4 kg

DRUGS (1)
  1. AZO URINARY TRACT HEALTH [Suspect]
     Active Substance: PHENAZOPYRIDINE HYDROCHLORIDE
     Indication: URINARY TRACT DISCOMFORT
     Dosage: ?          QUANTITY:18 TABLET(S);?
     Route: 048
     Dates: start: 20180414, end: 20180414

REACTIONS (2)
  - Pain [None]
  - Chills [None]

NARRATIVE: CASE EVENT DATE: 20180414
